FAERS Safety Report 5847687-4 (Version None)
Quarter: 2008Q3

REPORT INFORMATION
  Report Type: 
  Country: None (occurrence: None)
  Receive Date: 20080818
  Receipt Date: 20080808
  Transmission Date: 20090109
  Serious: Yes (Death, Hospitalization)
  Sender: FDA-Public Use
  Company Number: US-AMGEN-QUU300369

PATIENT
  Sex: Male

DRUGS (3)
  1. ARANESP [Suspect]
     Indication: ANAEMIA OF MALIGNANT DISEASE
     Dates: start: 20070724, end: 20070813
  2. GEMZAR [Concomitant]
  3. CARBOPLATIN [Concomitant]

REACTIONS (4)
  - BLOOD URINE PRESENT [None]
  - DEATH [None]
  - MALAISE [None]
  - WHITE BLOOD CELL COUNT DECREASED [None]
